FAERS Safety Report 21751206 (Version 1)
Quarter: 2022Q4

REPORT INFORMATION
  Report Type: Report from Study
  Country: US (occurrence: US)
  Receive Date: 20221220
  Receipt Date: 20221220
  Transmission Date: 20230112
  Serious: Yes (Other)
  Sender: FDA-Public Use
  Company Number: US-UCBSA-2022070758

PATIENT
  Sex: Female

DRUGS (1)
  1. BRIVARACETAM [Suspect]
     Active Substance: BRIVARACETAM
     Indication: Seizure
     Dosage: 25 MILLIGRAM, 2X/DAY (BID)

REACTIONS (5)
  - Generalised tonic-clonic seizure [Unknown]
  - Fall [Unknown]
  - Ligament sprain [Unknown]
  - Product prescribing error [Unknown]
  - Therapy interrupted [Unknown]
